FAERS Safety Report 24731662 (Version 1)
Quarter: 2024Q4

REPORT INFORMATION
  Report Type: Spontaneous
  Country: JP (occurrence: JP)
  Receive Date: 20241213
  Receipt Date: 20241213
  Transmission Date: 20250114
  Serious: Yes (Hospitalization)
  Sender: AKEBIA THERAPEUTICS
  Company Number: JP-KERYX BIOPHARMACEUTICALS INC.-JP-AKEB-24-001642

PATIENT

DRUGS (2)
  1. VADADUSTAT [Suspect]
     Active Substance: VADADUSTAT
     Indication: Product used for unknown indication
     Dosage: 300 MILLIGRAM, QD
     Route: 048
     Dates: start: 20230905
  2. VADADUSTAT [Suspect]
     Active Substance: VADADUSTAT
     Dosage: 450 MILLIGRAM
     Route: 048
     Dates: start: 20240924

REACTIONS (1)
  - Cerebral infarction [Unknown]

NARRATIVE: CASE EVENT DATE: 20241201
